FAERS Safety Report 4367996-8 (Version None)
Quarter: 2004Q2

REPORT INFORMATION
  Report Type: 
  Country: None (occurrence: None)
  Receive Date: 20040527
  Receipt Date: 20040426
  Transmission Date: 20050107
  Serious: No
  Sender: FDA-Public Use
  Company Number: 206107

PATIENT
  Age: 28 Year
  Sex: Female

DRUGS (1)
  1. RAPTIVA [Suspect]
     Indication: PSORIASIS
     Dosage: 0.6 MG 1/WEEK SUBCUTANEOUS
     Route: 058
     Dates: start: 20040422

REACTIONS (2)
  - HEADACHE [None]
  - INFLUENZA [None]
